FAERS Safety Report 4989491-5 (Version None)
Quarter: 2006Q2

REPORT INFORMATION
  Report Type: 
  Country: None (occurrence: None)
  Receive Date: 20060502
  Receipt Date: 20050218
  Transmission Date: 20061013
  Serious: Yes (Hospitalization, Other)
  Sender: FDA-Public Use
  Company Number: US-MERCK-0502USA02958

PATIENT
  Age: 77 Year
  Sex: Female
  Weight: 81 kg

DRUGS (9)
  1. VIOXX [Suspect]
     Indication: OSTEOARTHRITIS
     Route: 048
     Dates: start: 20000124, end: 20030101
  2. VIOXX [Suspect]
     Route: 048
     Dates: start: 20000124, end: 20030101
  3. INSULIN [Concomitant]
     Route: 065
  4. SYNTHROID [Concomitant]
     Route: 065
  5. ZESTRIL [Concomitant]
     Route: 065
  6. COMBIVENT [Concomitant]
     Route: 065
  7. FLOVENT [Concomitant]
     Route: 065
  8. SEREVENT [Concomitant]
     Route: 065
  9. CLARITIN [Concomitant]
     Route: 065

REACTIONS (13)
  - AORTIC ARTERIOSCLEROSIS [None]
  - CAROTID ARTERY STENOSIS [None]
  - CEREBRAL DISORDER [None]
  - CEREBROVASCULAR ACCIDENT [None]
  - CHOLELITHIASIS [None]
  - CHRONIC OBSTRUCTIVE PULMONARY DISEASE [None]
  - CONDITION AGGRAVATED [None]
  - FALL [None]
  - HYPERTENSION [None]
  - INJURY [None]
  - LARGE INTESTINAL HAEMORRHAGE [None]
  - MICROANGIOPATHY [None]
  - PLEURAL FIBROSIS [None]
